FAERS Safety Report 13694188 (Version 1)
Quarter: 2017Q2

REPORT INFORMATION
  Report Type: Spontaneous
  Country: US (occurrence: US)
  Receive Date: 20170626
  Receipt Date: 20170626
  Transmission Date: 20170830
  Serious: Yes (Other)
  Sender: FDA-Public Use
  Company Number: None

PATIENT
  Age: 79 Year
  Sex: Male

DRUGS (9)
  1. METFORMIN [Concomitant]
     Active Substance: METFORMIN HYDROCHLORIDE
  2. POMALYST [Suspect]
     Active Substance: POMALIDOMIDE
     Indication: PLASMA CELL MYELOMA
     Route: 048
     Dates: start: 20170524, end: 20170528
  3. GLIPIZIDE. [Concomitant]
     Active Substance: GLIPIZIDE
  4. LISINOPRIL. [Concomitant]
     Active Substance: LISINOPRIL
  5. POMALIDOMIDE [Concomitant]
     Active Substance: POMALIDOMIDE
  6. METOPROLOL. [Concomitant]
     Active Substance: METOPROLOL
  7. ASPIRIN. [Concomitant]
     Active Substance: ASPIRIN
  8. SILDENAFIL. [Concomitant]
     Active Substance: SILDENAFIL
  9. ONDANSETRON [Concomitant]
     Active Substance: ONDANSETRON

REACTIONS (3)
  - Rash [None]
  - Therapy cessation [None]
  - Pruritus [None]

NARRATIVE: CASE EVENT DATE: 20170528
